FAERS Safety Report 19157294 (Version 1)
Quarter: 2021Q2

REPORT INFORMATION
  Report Type: Report from Study
  Country: CA (occurrence: CA)
  Receive Date: 20210420
  Receipt Date: 20210420
  Transmission Date: 20210717
  Serious: Yes (Other)
  Sender: FDA-Public Use
  Company Number: NVSC2021CA085859

PATIENT
  Age: 28 Year
  Sex: Female

DRUGS (5)
  1. FOLIC ACID. [Suspect]
     Active Substance: FOLIC ACID
     Indication: PRODUCT USED FOR UNKNOWN INDICATION
     Dosage: 5 MG, QD
     Route: 048
  2. DICLOFENAC [Suspect]
     Active Substance: DICLOFENAC
     Indication: PRODUCT USED FOR UNKNOWN INDICATION
     Dosage: 50 MG, BID
     Route: 048
     Dates: start: 2018, end: 2018
  3. CIMZIA [Concomitant]
     Active Substance: CERTOLIZUMAB PEGOL
     Indication: PRODUCT USED FOR UNKNOWN INDICATION
     Dosage: UNK
     Route: 065
  4. MELOXICAM. [Concomitant]
     Active Substance: MELOXICAM
     Indication: PRODUCT USED FOR UNKNOWN INDICATION
     Dosage: UNK
     Route: 065
     Dates: start: 2018, end: 2018
  5. CERTOLIZUMAB PEGOL [Concomitant]
     Active Substance: CERTOLIZUMAB PEGOL
     Indication: PRODUCT USED FOR UNKNOWN INDICATION
     Dosage: UNK UNK, Q2W
     Route: 058

REACTIONS (12)
  - Musculoskeletal stiffness [Unknown]
  - Pustular psoriasis [Unknown]
  - Back pain [Unknown]
  - Discomfort [Unknown]
  - Ankylosing spondylitis [Recovered/Resolved]
  - Fatigue [Unknown]
  - Gait disturbance [Unknown]
  - Spondyloarthropathy [Unknown]
  - Neck pain [Unknown]
  - Arthritis bacterial [Unknown]
  - Arthralgia [Unknown]
  - Treatment failure [Unknown]

NARRATIVE: CASE EVENT DATE: 20210312
